FAERS Safety Report 6879806-5 (Version None)
Quarter: 2010Q3

REPORT INFORMATION
  Report Type: 
  Country: None (occurrence: None)
  Receive Date: 20100728
  Receipt Date: 20100722
  Transmission Date: 20110219
  Serious: Yes (Death)
  Sender: FDA-Public Use
  Company Number: GXKR2009CO05498

PATIENT
  Sex: Female

DRUGS (1)
  1. MIRTAZAPINE SANDOZ (NGX) [Suspect]
     Indication: BIPOLAR DISORDER
     Dosage: 30 MG, DAILY
     Route: 048
     Dates: start: 20081201

REACTIONS (1)
  - NEOPLASM MALIGNANT [None]
